FAERS Safety Report 5155476-1 (Version None)
Quarter: 2006Q4

REPORT INFORMATION
  Report Type: 
  Country: None (occurrence: None)
  Receive Date: 20061114
  Receipt Date: 20061101
  Transmission Date: 20070319
  Serious: Yes (Life-Threatening, Other)
  Sender: FDA-Public Use
  Company Number: 2006BH014436

PATIENT

DRUGS (2)
  1. HEPARIN SODIUM INJECTION [Suspect]
     Indication: CORONARY ARTERY BYPASS
     Dosage: UNK; UNK
     Dates: start: 20060801
  2. ANGIOMAX [Suspect]
     Indication: PERCUTANEOUS CORONARY INTERVENTION
     Dosage: UNK; UNK
     Dates: start: 20060101

REACTIONS (6)
  - CARDIAC TAMPONADE [None]
  - COAGULATION TIME PROLONGED [None]
  - CORONARY ARTERY BYPASS [None]
  - DRUG INTERACTION [None]
  - HAEMORRHAGE [None]
  - SUTURE RUPTURE [None]
